FAERS Safety Report 5798777-6 (Version None)
Quarter: 2008Q3

REPORT INFORMATION
  Report Type: 
  Country: None (occurrence: None)
  Receive Date: 20080702
  Receipt Date: 20080627
  Transmission Date: 20090109
  Serious: Yes (Hospitalization)
  Sender: FDA-Public Use
  Company Number: JP-BAYER-200810520BYL

PATIENT
  Age: 47 Year
  Sex: Male
  Weight: 64 kg

DRUGS (39)
  1. CAMPATH [Suspect]
     Indication: APLASTIC ANAEMIA
     Route: 041
     Dates: start: 20071118, end: 20071123
  2. FLUDARA [Suspect]
     Indication: APLASTIC ANAEMIA
     Route: 041
     Dates: start: 20071122, end: 20071125
  3. CYCLOPHOSPHAMIDE [Suspect]
     Indication: APLASTIC ANAEMIA
     Route: 041
     Dates: start: 20071122, end: 20071125
  4. CYCLOSPORINE [Concomitant]
     Indication: PROPHYLAXIS AGAINST GRAFT VERSUS HOST DISEASE
     Dates: start: 20071127
  5. NEORAL [Concomitant]
     Indication: PROPHYLAXIS AGAINST GRAFT VERSUS HOST DISEASE
     Route: 048
     Dates: start: 20080312
  6. URSO 250 [Concomitant]
     Indication: PROPHYLAXIS
     Route: 048
     Dates: start: 20071118
  7. ADEROXAL [Concomitant]
     Indication: PROPHYLAXIS
     Route: 048
     Dates: start: 20071122
  8. ISCOTIN [Concomitant]
     Indication: TUBERCULOUS PLEURISY
     Route: 048
  9. PYRAMIDE [Concomitant]
     Indication: TUBERCULOUS PLEURISY
     Route: 048
     Dates: start: 20071227
  10. ESANBUTOL [Concomitant]
     Indication: TUBERCULOUS PLEURISY
     Route: 048
     Dates: start: 20071227
  11. BAKTAR [Concomitant]
     Indication: ANTIFUNGAL PROPHYLAXIS
     Route: 048
     Dates: start: 20080115
  12. TAKEPRON OD [Concomitant]
     Indication: PROPHYLAXIS
     Route: 048
  13. ITRIZOLE [Concomitant]
     Indication: ANTIFUNGAL PROPHYLAXIS
     Route: 048
     Dates: start: 20071227
  14. GRAN [Concomitant]
     Indication: WHITE BLOOD CELL COUNT DECREASED
     Route: 058
     Dates: start: 20080328, end: 20080328
  15. GRAN [Concomitant]
     Route: 058
     Dates: start: 20080322, end: 20080322
  16. GRAN [Concomitant]
     Route: 058
     Dates: start: 20080317, end: 20080317
  17. GRAN [Concomitant]
     Route: 058
     Dates: start: 20071127
  18. GRAN [Concomitant]
     Route: 058
     Dates: start: 20080303, end: 20080303
  19. GRAN [Concomitant]
     Route: 058
     Dates: start: 20080306, end: 20080306
  20. GRAN [Concomitant]
     Route: 058
     Dates: start: 20080310, end: 20080310
  21. GRAN [Concomitant]
     Route: 058
     Dates: start: 20080409, end: 20080409
  22. GRAN [Concomitant]
     Route: 058
     Dates: start: 20080405, end: 20080405
  23. GRAN [Concomitant]
     Route: 058
     Dates: start: 20080331, end: 20080331
  24. GRAN [Concomitant]
     Route: 058
     Dates: start: 20080225, end: 20080225
  25. GRAN [Concomitant]
     Route: 058
     Dates: start: 20080312, end: 20080312
  26. GRAN [Concomitant]
     Route: 058
     Dates: start: 20080320, end: 20080320
  27. GRAN [Concomitant]
     Route: 058
     Dates: start: 20080324, end: 20080324
  28. GRAN [Concomitant]
     Route: 058
     Dates: start: 20080326, end: 20080326
  29. BFLUID [Concomitant]
     Indication: NUTRITIONAL SUPPORT
     Route: 041
     Dates: start: 20080317, end: 20080325
  30. PHYSIO 35 [Concomitant]
     Indication: NUTRITIONAL SUPPORT
     Route: 041
     Dates: start: 20080317, end: 20080323
  31. SOLITA-T NO.1 [Concomitant]
     Indication: NUTRITIONAL SUPPORT
     Route: 041
     Dates: start: 20080323, end: 20080330
  32. SOLITA-T NO.3 [Concomitant]
     Indication: NUTRITIONAL SUPPORT
     Route: 041
     Dates: start: 20080326, end: 20080408
  33. CONCLYTE-MG [Concomitant]
     Indication: NUTRITIONAL SUPPORT
     Route: 041
     Dates: start: 20080317, end: 20080408
  34. POTASSIUM CHLORIDE [Concomitant]
     Indication: NUTRITIONAL SUPPORT
     Dosage: TOTAL DAILY DOSE: 15 ML  UNIT DOSE: 15 ML
     Route: 041
     Dates: start: 20080331, end: 20080331
  35. NOVOLIN R [Concomitant]
     Indication: DIABETES MELLITUS INADEQUATE CONTROL
     Route: 058
     Dates: start: 20080321, end: 20080328
  36. LASIX [Concomitant]
     Indication: WEIGHT CONTROL
     Dosage: TOTAL DAILY DOSE: 40 MG  UNIT DOSE: 40 MG
     Route: 042
     Dates: start: 20080330, end: 20080401
  37. LASIX [Concomitant]
     Dosage: TOTAL DAILY DOSE: 20 MG  UNIT DOSE: 20 MG
     Route: 048
     Dates: start: 20080401, end: 20080404
  38. LASIX [Concomitant]
     Dosage: TOTAL DAILY DOSE: 20 MG  UNIT DOSE: 20 MG
     Route: 048
     Dates: start: 20080409, end: 20080411
  39. LASIX [Concomitant]
     Dosage: UNIT DOSE: 40 MG
     Route: 048
     Dates: start: 20080405, end: 20080408

REACTIONS (5)
  - ACUTE GRAFT VERSUS HOST DISEASE IN INTESTINE [None]
  - ANOREXIA [None]
  - CYTOMEGALOVIRUS ANTIGEN POSITIVE [None]
  - DIARRHOEA [None]
  - WEIGHT DECREASED [None]
